FAERS Safety Report 4383018-7 (Version None)
Quarter: 2004Q2

REPORT INFORMATION
  Report Type: 
  Country: None (occurrence: None)
  Receive Date: 20040526
  Receipt Date: 20040329
  Transmission Date: 20050107
  Serious: Yes (Hospitalization)
  Sender: FDA-Public Use
  Company Number: USA040363386

PATIENT
  Age: 42 Year
  Sex: Male

DRUGS (3)
  1. ZYPREXA [Suspect]
     Indication: BIPOLAR DISORDER
     Dosage: 15 MG DAY
  2. HIGH BLOOD PRESSURE [Concomitant]
  3. DIURETIC [Concomitant]

REACTIONS (2)
  - HYPERHIDROSIS [None]
  - JOINT SWELLING [None]
